FAERS Safety Report 7563565-7 (Version None)
Quarter: 2011Q2

REPORT INFORMATION
  Report Type: 
  Country: None (occurrence: None)
  Receive Date: 20110622
  Receipt Date: 20110608
  Transmission Date: 20111010
  Serious: Yes (Hospitalization)
  Sender: FDA-Public Use
  Company Number: CA-JNJFOC-20110605312

PATIENT
  Sex: Male
  Weight: 77.3 kg

DRUGS (4)
  1. REMICADE [Suspect]
     Indication: CROHN'S DISEASE
     Route: 042
     Dates: start: 20100407
  2. ZOPICLONE [Concomitant]
  3. IMURAN [Concomitant]
  4. TYLENOL W/ CODEINE NO. 4 [Concomitant]

REACTIONS (1)
  - INJURY [None]
